FAERS Safety Report 6235365-1 (Version None)
Quarter: 2009Q2

REPORT INFORMATION
  Report Type: 
  Country: None (occurrence: None)
  Receive Date: 20090615
  Receipt Date: 20090603
  Transmission Date: 20091009
  Serious: Yes (Hospitalization)
  Sender: FDA-Public Use
  Company Number: 005811

PATIENT
  Age: 88 Year
  Sex: Female

DRUGS (4)
  1. PLETAL [Suspect]
     Indication: ARTERIAL OCCLUSIVE DISEASE
     Dosage: 100 MG, BID, ORAL
     Route: 048
     Dates: start: 20070625, end: 20081229
  2. LASIX [Concomitant]
  3. SLOW-K [Concomitant]
  4. ARICEPT [Concomitant]

REACTIONS (1)
  - BRAIN STEM HAEMORRHAGE [None]
